FAERS Safety Report 11969123 (Version 1)
Quarter: 2016Q1

REPORT INFORMATION
  Report Type: Report from Study
  Country: US (occurrence: US)
  Receive Date: 20160128
  Receipt Date: 20160128
  Transmission Date: 20160526
  Serious: No
  Sender: FDA-Public Use
  Company Number: US-AMGEN-USASL2016007168

PATIENT
  Age: 66 Year
  Sex: Female

DRUGS (1)
  1. ENBREL [Suspect]
     Active Substance: ETANERCEPT
     Indication: RHEUMATOID ARTHRITIS
     Dosage: UNK, QWK
     Route: 065

REACTIONS (6)
  - Pain [Unknown]
  - Injection site urticaria [Recovered/Resolved]
  - Chills [Recovered/Resolved]
  - Nasopharyngitis [Recovered/Resolved]
  - Injection site discolouration [Unknown]
  - Injection site reaction [Recovered/Resolved]
